FAERS Safety Report 7985820-9 (Version None)
Quarter: 2011Q4

REPORT INFORMATION
  Report Type: 
  Country: None (occurrence: None)
  Receive Date: 20111214
  Receipt Date: 20111205
  Transmission Date: 20120403
  Serious: Yes (Other)
  Sender: FDA-Public Use
  Company Number: DSA_47922_2011

PATIENT
  Sex: Female

DRUGS (3)
  1. DILTIAZEM [Suspect]
     Indication: PRODUCT USED FOR UNKNOWN INDICATION
     Dosage: (60 MG BID)
  2. VITAMINS NOS [Concomitant]
  3. MULTAQ [Suspect]
     Indication: ATRIAL FIBRILLATION
     Dosage: (400MG BID ORAL)
     Route: 048
     Dates: start: 20110701

REACTIONS (8)
  - ATRIAL FIBRILLATION [None]
  - FATIGUE [None]
  - BLOOD PRESSURE DIASTOLIC INCREASED [None]
  - NERVOUSNESS [None]
  - MALAISE [None]
  - MUSCULOSKELETAL DISORDER [None]
  - TREMOR [None]
  - CHEST PAIN [None]
